FAERS Safety Report 9493138 (Version 2)
Quarter: 2013Q3

REPORT INFORMATION
  Report Type: Spontaneous
  Country: US (occurrence: US)
  Receive Date: 20130902
  Receipt Date: 20130902
  Transmission Date: 20140515
  Serious: Yes (Hospitalization, Other)
  Sender: FDA-Public Use
  Company Number: US-AMGEN-USASP2013056841

PATIENT
  Age: 64 Year
  Sex: Female
  Weight: 86.62 kg

DRUGS (3)
  1. PROLIA [Suspect]
     Indication: OSTEOPOROSIS POSTMENOPAUSAL
     Dosage: UNK
     Route: 065
  2. CALCIUM CARBONATE [Concomitant]
     Dosage: UNK UNK, BID
  3. LISINOPRIL [Concomitant]
     Dosage: 25 TWO DAILY

REACTIONS (19)
  - Syncope [Unknown]
  - Cardiomegaly [Unknown]
  - Urinary tract infection [Unknown]
  - Pneumonia [Recovered/Resolved]
  - Extrasystoles [Unknown]
  - Pulmonary fibrosis [Unknown]
  - Arteriosclerosis [Unknown]
  - Ventricular extrasystoles [Unknown]
  - Adverse event [Unknown]
  - Nasopharyngitis [Unknown]
  - Dizziness [Unknown]
  - Fall [Unknown]
  - Dyspnoea [Unknown]
  - Dysuria [Unknown]
  - Chest pain [Unknown]
  - Asthenia [Unknown]
  - Arthralgia [Unknown]
  - Fatigue [Unknown]
  - Back pain [Unknown]
